FAERS Safety Report 10449066 (Version 1)
Quarter: 2014Q3

REPORT INFORMATION
  Report Type: Spontaneous
  Country: US (occurrence: None)
  Receive Date: 20140911
  Receipt Date: 20140911
  Transmission Date: 20150326
  Serious: Yes (Disabling, Other)
  Sender: FDA-Public Use
  Company Number: None

PATIENT
  Age: 55 Year
  Sex: Male
  Weight: 86.18 kg

DRUGS (2)
  1. TRAMADOL HYDROCHLORIDE. [Suspect]
     Active Substance: TRAMADOL HYDROCHLORIDE
     Indication: POSTOPERATIVE ANALGESIA
     Dosage: 50 MG, 1 TAB, 76 HOURS, BY MOUTH
     Route: 048
     Dates: start: 20111029, end: 20120121
  2. TRAMADOL HYDROCHLORIDE. [Suspect]
     Active Substance: TRAMADOL HYDROCHLORIDE
     Indication: HIP ARTHROPLASTY
     Dosage: 50 MG, 1 TAB, 76 HOURS, BY MOUTH
     Route: 048
     Dates: start: 20111029, end: 20120121

REACTIONS (4)
  - Mouth injury [None]
  - Enuresis [None]
  - Memory impairment [None]
  - Unevaluable event [None]

NARRATIVE: CASE EVENT DATE: 20120421
